FAERS Safety Report 8594313 (Version 9)
Quarter: 2014Q4

REPORT INFORMATION
  Report Type: Report from Study
  Country: AR (occurrence: AR)
  Receive Date: 20120604
  Receipt Date: 20141121
  Transmission Date: 20150529
  Serious: Yes (Hospitalization, Other)
  Sender: FDA-Public Use
  Company Number: AR-ROCHE-1074149

PATIENT
  Age: 61 Year
  Sex: Female

DRUGS (2)
  1. XOLAIR [Suspect]
     Active Substance: OMALIZUMAB
     Indication: ASTHMA
     Route: 065
     Dates: start: 2009
  2. XOLAIR [Suspect]
     Active Substance: OMALIZUMAB
     Indication: EMPHYSEMA

REACTIONS (29)
  - Rosacea [Recovering/Resolving]
  - Wheezing [Not Recovered/Not Resolved]
  - Secretion discharge [Recovering/Resolving]
  - Food allergy [Unknown]
  - Gastrooesophageal reflux disease [Unknown]
  - Lung disorder [Unknown]
  - Bronchitis [Recovering/Resolving]
  - Abdominal distension [Recovering/Resolving]
  - Dyspnoea [Not Recovered/Not Resolved]
  - Swelling [Recovering/Resolving]
  - Anaemia [Unknown]
  - Product use issue [Unknown]
  - Osteoarthritis [Unknown]
  - Bronchospasm [Recovering/Resolving]
  - External ear inflammation [Not Recovered/Not Resolved]
  - Osteoporosis [Unknown]
  - Pyrexia [Not Recovered/Not Resolved]
  - Fatigue [Not Recovered/Not Resolved]
  - Blood pressure increased [Not Recovered/Not Resolved]
  - Chronic obstructive pulmonary disease [Recovering/Resolving]
  - Cough [Not Recovered/Not Resolved]
  - Foot fracture [Unknown]
  - Sneezing [Unknown]
  - Skin discolouration [Recovering/Resolving]
  - Hypersensitivity [Not Recovered/Not Resolved]
  - Pneumonia [Not Recovered/Not Resolved]
  - Increased upper airway secretion [Unknown]
  - Poor quality sleep [Unknown]
  - Snoring [Not Recovered/Not Resolved]

NARRATIVE: CASE EVENT DATE: 201205
